FAERS Safety Report 11370614 (Version 4)
Quarter: 2016Q4

REPORT INFORMATION
  Report Type: Spontaneous
  Country: JP (occurrence: JP)
  Receive Date: 20150812
  Receipt Date: 20161013
  Transmission Date: 20170206
  Serious: Yes (Hospitalization, Other)
  Sender: FDA-Public Use
  Company Number: JP-PFIZER INC-2015264031

PATIENT
  Age: 80 Year
  Sex: Female

DRUGS (16)
  1. HERBAL NOS [Concomitant]
     Active Substance: HERBALS
     Indication: DYSPEPSIA
     Dosage: 1 DF, 3X/DAY
  2. LYRICA [Suspect]
     Active Substance: PREGABALIN
     Indication: SCIATICA
     Dosage: 50 MG, DAILY
     Route: 048
  3. AMLODIN [Concomitant]
     Active Substance: AMLODIPINE BESYLATE
     Indication: HYPERTENSION
     Dosage: 5 MG, 1X/DAY
  4. LAC B N [Concomitant]
     Indication: DYSPEPSIA
     Dosage: 1 DF, 3X/DAY
  5. MOBIC [Concomitant]
     Active Substance: MELOXICAM
     Indication: BACK PAIN
     Dosage: 10 MG, 1X/DAY
     Dates: end: 20150803
  6. LYRICA [Suspect]
     Active Substance: PREGABALIN
     Indication: BACK PAIN
     Dosage: 75 MG, 2X/DAY
     Route: 048
     Dates: start: 20150730, end: 20150805
  7. ALDACTONE A [Concomitant]
     Active Substance: SPIRONOLACTONE
     Indication: CARDIAC FAILURE
     Dosage: 25 MG, 1X/DAY
     Dates: end: 20150803
  8. BAKTAR [Concomitant]
     Active Substance: SULFAMETHOXAZOLE\TRIMETHOPRIM
     Indication: PROPHYLAXIS
     Dosage: 0.5 DF, 1X/DAY
  9. PREDONINE [Concomitant]
     Active Substance: PREDNISOLONE\PREDNISOLONE ACETATE\PREDNISOLONE SODIUM SUCCINATE
     Indication: DERMATOMYOSITIS
     Dosage: 5 MG, 1X/DAY
  10. CELECOX [Concomitant]
     Active Substance: CELECOXIB
     Indication: BACK PAIN
     Dosage: 100 MG, 2X/DAY
     Dates: end: 20150803
  11. PURSENNID [Concomitant]
     Active Substance: SENNOSIDES A AND B
     Indication: CONSTIPATION
     Dosage: 2 MG, 1X/DAY
  12. GASLON [Concomitant]
     Active Substance: IRSOGLADINE MALEATE
     Dosage: 2 MG, 2X/DAY
     Dates: end: 20150812
  13. CEREKINON [Concomitant]
     Active Substance: TRIMEBUTINE
     Indication: DYSPEPSIA
     Dosage: 100 MG, 3X/DAY
  14. OLMETEC [Concomitant]
     Active Substance: OLMESARTAN MEDOXOMIL
     Indication: HYPERTENSION
     Dosage: 20 MG, 2X/DAY
  15. LASIX [Concomitant]
     Active Substance: FUROSEMIDE
     Indication: CARDIAC FAILURE
     Dosage: 20 MG, 1X/DAY
  16. NEXIUM [Concomitant]
     Active Substance: ESOMEPRAZOLE MAGNESIUM
     Indication: PROPHYLAXIS AGAINST GASTROINTESTINAL ULCER
     Dosage: 20 MG, 1X/DAY

REACTIONS (7)
  - Condition aggravated [Recovered/Resolved]
  - Abasia [Unknown]
  - Dehydration [Recovered/Resolved]
  - Drug level increased [Unknown]
  - Condition aggravated [Unknown]
  - Myoclonus [Recovered/Resolved]
  - Renal impairment [Recovered/Resolved]

NARRATIVE: CASE EVENT DATE: 20150731
